FAERS Safety Report 5541034-3 (Version None)
Quarter: 2007Q4

REPORT INFORMATION
  Report Type: 
  Country: None (occurrence: None)
  Receive Date: 20071209
  Receipt Date: 20061228
  Transmission Date: 20080405
  Serious: No
  Sender: FDA-Public Use
  Company Number: US-AMGEN-KDL205103

PATIENT
  Sex: Female

DRUGS (3)
  1. ENBREL [Suspect]
     Indication: RHEUMATOID ARTHRITIS
     Route: 058
     Dates: start: 20060801
  2. ARAVA [Concomitant]
     Dates: start: 20060401
  3. SULFASALAZINE [Concomitant]
     Dates: start: 20060401

REACTIONS (1)
  - INJECTION SITE IRRITATION [None]
